FAERS Safety Report 6669939-0 (Version None)
Quarter: 2010Q2

REPORT INFORMATION
  Report Type: 
  Country: None (occurrence: None)
  Receive Date: 20100406
  Receipt Date: 20100118
  Transmission Date: 20101027
  Serious: No
  Sender: FDA-Public Use
  Company Number: US-ALLERGAN-1000640US

PATIENT
  Sex: Male

DRUGS (3)
  1. LATISSE [Suspect]
     Indication: GROWTH OF EYELASHES
     Dosage: 1-2 GTTS
     Route: 061
  2. LATISSE [Suspect]
     Dosage: 1-2
     Route: 061
  3. QUINAPRIL [Concomitant]
     Indication: HYPERTENSION

REACTIONS (1)
  - OCULAR HYPERAEMIA [None]
